FAERS Safety Report 7642407-5 (Version None)
Quarter: 2011Q3

REPORT INFORMATION
  Report Type: 
  Country: None (occurrence: None)
  Receive Date: 20110728
  Receipt Date: 20100823
  Transmission Date: 20111222
  Serious: No
  Sender: FDA-Public Use
  Company Number: US-MYLANLABS-2010S1015571

PATIENT
  Sex: Female

DRUGS (2)
  1. LEVOTHYROXINE SODIUM [Suspect]
     Dates: start: 20100501
  2. LEVOTHYROXINE SODIUM [Suspect]
     Dates: start: 20100501

REACTIONS (3)
  - HEART RATE IRREGULAR [None]
  - HEART RATE INCREASED [None]
  - CHEST PAIN [None]
